FAERS Safety Report 5764060-8 (Version None)
Quarter: 2008Q2

REPORT INFORMATION
  Report Type: 
  Country: None (occurrence: None)
  Receive Date: 20080609
  Receipt Date: 20080506
  Transmission Date: 20081010
  Serious: No
  Sender: FDA-Public Use
  Company Number: 002#1#2008-00383

PATIENT
  Age: 72 Year
  Sex: Female
  Weight: 54.4316 kg

DRUGS (9)
  1. NEUPRO [Suspect]
     Dosage: 6MG/24H, 1 IN 1 D, TRANSDERMAL; 4MG/24H, 1 IN 1 D, TRANSDERMAL; 2MG/24H, 1 IN 1 D, TRANSDERMAL
     Route: 062
     Dates: start: 20070901, end: 20080410
  2. NEUPRO [Suspect]
     Dosage: 6MG/24H, 1 IN 1 D, TRANSDERMAL; 4MG/24H, 1 IN 1 D, TRANSDERMAL; 2MG/24H, 1 IN 1 D, TRANSDERMAL
     Route: 062
     Dates: start: 20080410, end: 20080504
  3. NEUPRO [Suspect]
     Dosage: 6MG/24H, 1 IN 1 D, TRANSDERMAL; 4MG/24H, 1 IN 1 D, TRANSDERMAL; 2MG/24H, 1 IN 1 D, TRANSDERMAL
     Route: 062
     Dates: start: 20080505
  4. AZILECT [Concomitant]
  5. EXELON [Concomitant]
  6. ALPRAZOLAM [Concomitant]
  7. AMANTADINE HCL [Concomitant]
  8. CARBIDOPA AND LEVODOPA [Concomitant]
  9. SEROQUEL [Concomitant]

REACTIONS (3)
  - DYSKINESIA [None]
  - PARKINSON'S DISEASE [None]
  - TREMOR [None]
